FAERS Safety Report 10040852 (Version 2)
Quarter: 2014Q1

REPORT INFORMATION
  Report Type: Spontaneous
  Country: US (occurrence: US)
  Receive Date: 20140327
  Receipt Date: 20140327
  Transmission Date: 20141002
  Serious: No
  Sender: FDA-Public Use
  Company Number: US-PFIZER INC-2013364361

PATIENT
  Age: 62 Year
  Sex: Female
  Weight: 55.78 kg

DRUGS (4)
  1. LYRICA [Suspect]
     Indication: SPINAL CORD INJURY
     Dosage: 75 MG, 2X/DAY
     Dates: start: 201310
  2. DDAVP [Concomitant]
     Indication: BLADDER DISORDER
     Dosage: UNK, 1X/DAY
  3. BACLOFEN [Concomitant]
     Indication: MUSCLE SPASMS
     Dosage: 10 MG, UNK (FOUR TO SIX TIMES A DAY)
  4. METHOTREXATE [Concomitant]
     Indication: OSTEOARTHRITIS
     Dosage: 5 ML, WEEKLY

REACTIONS (1)
  - Therapeutic response unexpected [Unknown]
